FAERS Safety Report 18861494 (Version 1)
Quarter: 2021Q1

REPORT INFORMATION
  Report Type: Spontaneous
  Country: DE (occurrence: DE)
  Receive Date: 20210208
  Receipt Date: 20210208
  Transmission Date: 20210420
  Serious: Yes (Hospitalization)
  Sender: FDA-Public Use
  Company Number: NVSC2021DE024666

PATIENT
  Age: 14 Year
  Sex: Female
  Weight: 66 kg

DRUGS (4)
  1. PARACETAMOL [Suspect]
     Active Substance: ACETAMINOPHEN
     Dosage: 1000 MG, QD (DAILY DOSE: 1000 MG MILLGRAM(S) EVERY DAYS 2 SEPARATED DOSES)
     Route: 048
     Dates: start: 20200411, end: 20200411
  2. PARACETAMOL [Suspect]
     Active Substance: ACETAMINOPHEN
     Indication: TOXICITY TO VARIOUS AGENTS
     Dosage: 500 MG (10?12)
     Route: 048
     Dates: start: 20200406, end: 20200406
  3. PARACETAMOL [Suspect]
     Active Substance: ACETAMINOPHEN
     Indication: HEADACHE
     Dosage: 5000 MG, QD (DAILY DOSE: 5000 MG MILLGRAM(S) EVERY DAYS 10 SEPARATED DOSES)
     Route: 048
     Dates: start: 20200409, end: 20200409
  4. PARACETAMOL [Suspect]
     Active Substance: ACETAMINOPHEN
     Dosage: 500 MG, QD (DAILY DOSE: 500 MG MILLGRAM(S) EVERY DAYS)
     Route: 048
     Dates: start: 20200412, end: 20200412

REACTIONS (2)
  - Intentional overdose [Unknown]
  - Toxicity to various agents [Unknown]

NARRATIVE: CASE EVENT DATE: 20200406
